FAERS Safety Report 5502337-1 (Version None)
Quarter: 2007Q4

REPORT INFORMATION
  Report Type: 
  Country: None (occurrence: None)
  Receive Date: 20071030
  Receipt Date: 20071018
  Transmission Date: 20080405
  Serious: Yes (Congenital Anomaly)
  Sender: FDA-Public Use
  Company Number: US-SHR-US-2007-004476

PATIENT
  Age: 1 Day
  Sex: Female
  Weight: 3.968 kg

DRUGS (6)
  1. BETAFERON [Suspect]
     Indication: MULTIPLE SCLEROSIS
     Dosage: 8 MIU, EVERY 2D
     Route: 064
     Dates: end: 20060428
  2. PRENATAL VITAMINS [Concomitant]
     Indication: PREGNANCY
     Dosage: 1 TAB(S), 1X/DAY
     Route: 064
  3. ZOFRAN [Concomitant]
     Indication: NAUSEA
     Dosage: 4 MG DAILY
     Route: 064
     Dates: start: 20060101
  4. FIORICET [Concomitant]
     Indication: MIGRAINE
     Dosage: UNK, AS REQ'D
     Route: 064
     Dates: start: 20060101, end: 20060629
  5. MACROBID [Concomitant]
     Dosage: 1 TAB(S), 2X/DAY
     Dates: start: 20060714, end: 20060720
  6. IRON (REPLIVA) [Concomitant]
     Dosage: 1 UNK, 1X/DAY
     Dates: start: 20061015

REACTIONS (1)
  - MEDIUM-CHAIN ACETYL-COENZYME A DEHYDROGENASE DEFICIENCY [None]
